FAERS Safety Report 6780313-9 (Version None)
Quarter: 2010Q2

REPORT INFORMATION
  Report Type: 
  Country: None (occurrence: None)
  Receive Date: 20100618
  Receipt Date: 20100614
  Transmission Date: 20101027
  Serious: Yes (Other)
  Sender: FDA-Public Use
  Company Number: US-ABBOTT-10P-163-0650900-00

PATIENT
  Sex: Female

DRUGS (1)
  1. LUPRON DEPOT [Suspect]
     Indication: ENDOMETRIOSIS

REACTIONS (9)
  - ABORTION SPONTANEOUS [None]
  - FEELING ABNORMAL [None]
  - HOT FLUSH [None]
  - LOSS OF LIBIDO [None]
  - MENSTRUATION IRREGULAR [None]
  - METRORRHAGIA [None]
  - MOOD SWINGS [None]
  - NIGHT SWEATS [None]
  - SURGERY [None]
